FAERS Safety Report 8045786 (Version 6)
Quarter: 2012Q4

REPORT INFORMATION
  Report Type: 
  Country: GB (occurrence: GB)
  Receive Date: 20110720
  Receipt Date: 20121109
  Transmission Date: 20130627
  Serious: Yes (Other)
  Sender: FDA-Public Use
  Company Number: PHFR2011GB02893

PATIENT
  Age: 36 Year
  Sex: Male

DRUGS (13)
  1. CLOZARIL [Suspect]
     Indication: SCHIZOPHRENIA
     Dosage: 400 mg/day
     Route: 048
     Dates: start: 20070918
  2. CLOZARIL [Suspect]
     Dosage: 400 mg/day
     Route: 048
     Dates: start: 20110720
  3. AMISULPRIDE [Suspect]
     Dosage: 600mg
  4. LANSOPRAZOLE [Concomitant]
     Dosage: 30 mg, UNK
     Route: 048
  5. FOLIC ACID [Concomitant]
     Dosage: 5 mg, UNK
     Route: 048
  6. PROPANOLOL [Concomitant]
     Dosage: 20 mg, UNK
     Route: 048
  7. AMITRIPTYLINE [Concomitant]
     Dosage: 25 mg, UNK
     Route: 048
  8. HYOSCINE [Concomitant]
     Indication: SALIVARY HYPERSECRETION
     Dosage: 600 mg, UNK
     Route: 061
  9. VALPROATE [Concomitant]
     Indication: SCHIZOPHRENIA
     Dosage: 400 mg, UNK
  10. VITAMIN B [Concomitant]
  11. PENICILLIN V [Concomitant]
  12. CLONAZEPAM [Concomitant]
     Indication: AGITATION
     Dosage: 4 mg,up to 4 mg
     Route: 048
  13. CLOZAPINE [Concomitant]
     Indication: SCHIZOPHRENIA
     Route: 048

REACTIONS (3)
  - Anaemia [Unknown]
  - Haemoglobin decreased [Unknown]
  - Platelet count decreased [Unknown]
